FAERS Safety Report 14928654 (Version 2)
Quarter: 2018Q3

REPORT INFORMATION
  Report Type: Spontaneous
  Country: US (occurrence: US)
  Receive Date: 20180523
  Receipt Date: 20180817
  Transmission Date: 20181010
  Serious: No
  Sender: FDA-Public Use
  Company Number: US-PFIZER INC-2018209622

PATIENT
  Age: 57 Year
  Sex: Female

DRUGS (1)
  1. EUCRISA [Suspect]
     Active Substance: CRISABOROLE
     Indication: DERMATITIS ATOPIC
     Dosage: UNK
     Route: 061

REACTIONS (3)
  - Application site pruritus [Unknown]
  - Skin disorder [Unknown]
  - Application site pain [Recovered/Resolved]

NARRATIVE: CASE EVENT DATE: 20180424
